FAERS Safety Report 16463733 (Version 4)
Quarter: 2019Q3

REPORT INFORMATION
  Report Type: Report from Study
  Country: None (occurrence: US)
  Receive Date: 20190621
  Receipt Date: 20190718
  Transmission Date: 20191004
  Serious: Yes (Death)
  Sender: FDA-Public Use
  Company Number: US-ABBVIE-19K-163-2828789-00

PATIENT
  Age: 72 Year
  Sex: Male

DRUGS (1)
  1. MAVYRET [Suspect]
     Active Substance: GLECAPREVIR\PIBRENTASVIR
     Indication: HEPATITIS C
     Route: 048
     Dates: start: 20181226, end: 201903

REACTIONS (4)
  - Respiratory failure [Fatal]
  - Obstructive airways disorder [Fatal]
  - Lung carcinoma cell type unspecified stage IV [Fatal]
  - Pneumonia [Fatal]

NARRATIVE: CASE EVENT DATE: 20190407
